FAERS Safety Report 4812754-0 (Version None)
Quarter: 2005Q4

REPORT INFORMATION
  Report Type: 
  Country: None (occurrence: None)
  Receive Date: 20051028
  Receipt Date: 20041115
  Transmission Date: 20060501
  Serious: No
  Sender: FDA-Public Use
  Company Number: US-GLAXOSMITHKLINE-A0533953A

PATIENT
  Sex: Male

DRUGS (9)
  1. ADVAIR DISKUS 100/50 [Suspect]
     Indication: CHRONIC OBSTRUCTIVE PULMONARY DISEASE
     Dosage: 1PUFF TWICE PER DAY
     Route: 055
  2. LISINOPRIL [Concomitant]
  3. FELODIPINE [Concomitant]
  4. ZOCOR [Concomitant]
  5. COMBIVENT [Concomitant]
  6. SINGULAIR [Concomitant]
  7. FLOMAX [Concomitant]
  8. SAW PALMETTO [Concomitant]
  9. ASPIRIN [Concomitant]

REACTIONS (3)
  - COUGH [None]
  - PHARMACEUTICAL PRODUCT COMPLAINT [None]
  - PRODUCTIVE COUGH [None]
